FAERS Safety Report 7940465-1 (Version None)
Quarter: 2011Q4

REPORT INFORMATION
  Report Type: 
  Country: None (occurrence: None)
  Receive Date: 20111128
  Receipt Date: 20111122
  Transmission Date: 20120403
  Serious: No
  Sender: FDA-Public Use
  Company Number: US-PFIZER INC-2011287551

PATIENT
  Sex: Male

DRUGS (4)
  1. SUTENT [Suspect]
     Dosage: 50 MG, DAILY, 4 WEEKS ON AND 2 WEEKS OFF
     Route: 048
     Dates: start: 20111101
  2. AMLODIPINE [Concomitant]
     Indication: HYPERTENSION
     Dosage: 10 MG, DAILY
     Route: 048
  3. HUMALOG [Concomitant]
     Indication: DIABETES MELLITUS
     Dosage: UNK
  4. LISINOPRIL [Concomitant]
     Indication: HYPERTENSION
     Dosage: 10 MG, DAILY
     Route: 048

REACTIONS (4)
  - DRY SKIN [None]
  - NASOPHARYNGITIS [None]
  - SKIN FISSURES [None]
  - COUGH [None]
